FAERS Safety Report 9190363 (Version 1)
Quarter: 2013Q1

REPORT INFORMATION
  Report Type: Spontaneous
  Country: US (occurrence: None)
  Receive Date: 20120703
  Receipt Date: 20120703
  Transmission Date: 20140127
  Serious: Yes (Other)
  Sender: FDA-Public Use
  Company Number: PHEH2012US005809

PATIENT
  Sex: Female

DRUGS (2)
  1. GILENYA (FTY) CAPSULE, 0.5 MG [Suspect]
     Route: 048
     Dates: start: 20111222
  2. GILENYA [Suspect]
     Route: 048

REACTIONS (4)
  - Pain [None]
  - Skin lesion [None]
  - Rash [None]
  - Herpes zoster [None]
